FAERS Safety Report 24098033 (Version 1)
Quarter: 2024Q3

REPORT INFORMATION
  Report Type: Spontaneous
  Country: US (occurrence: None)
  Receive Date: 20240716
  Receipt Date: 20240716
  Transmission Date: 20241016
  Serious: Yes (Hospitalization)
  Sender: Public
  Company Number: None

PATIENT
  Age: 49 Year
  Sex: Male

DRUGS (2)
  1. EPOGEN [Suspect]
     Active Substance: ERYTHROPOIETIN
  2. DEVICE [Suspect]
     Active Substance: DEVICE

REACTIONS (2)
  - Blood glucose increased [None]
  - Device connection issue [None]

NARRATIVE: CASE EVENT DATE: 20240712
